FAERS Safety Report 12057763 (Version 1)
Quarter: 2016Q1

REPORT INFORMATION
  Report Type: Spontaneous
  Country: KR (occurrence: KR)
  Receive Date: 20160210
  Receipt Date: 20160210
  Transmission Date: 20160526
  Serious: Yes (Hospitalization)
  Sender: FDA-Public Use
  Company Number: KR-AMGEN-KORCT2016015599

PATIENT
  Age: 42 Year
  Sex: Female
  Weight: 86.3 kg

DRUGS (39)
  1. FILGRASTIM [Concomitant]
     Active Substance: FILGRASTIM
     Dosage: 150 MCG, UNK
     Route: 058
     Dates: start: 20151127, end: 20151128
  2. FILGRASTIM [Concomitant]
     Active Substance: FILGRASTIM
     Dosage: 150 MCG, UNK
     Route: 058
     Dates: start: 20160108, end: 20160110
  3. DOCETAXEL. [Concomitant]
     Active Substance: DOCETAXEL
     Dosage: 147 MG, UNK
     Route: 042
     Dates: start: 20151121, end: 20151121
  4. DOXORUBICIN [Concomitant]
     Active Substance: DOXORUBICIN
     Dosage: 98 MG, UNK
     Route: 042
     Dates: start: 20151010, end: 20151010
  5. TOBRAMYCIN. [Concomitant]
     Active Substance: TOBRAMYCIN
     Dosage: 200 MG, UNK
     Route: 042
     Dates: start: 20151127, end: 20151128
  6. G-LASTA [Suspect]
     Active Substance: PEGFILGRASTIM
     Indication: FEBRILE NEUTROPENIA
     Dosage: 6 MG, Q3WK
     Route: 058
     Dates: start: 20151011
  7. FILGRASTIM [Concomitant]
     Active Substance: FILGRASTIM
     Dosage: 150 MCG, UNK
     Route: 058
     Dates: start: 20151106, end: 20151108
  8. CYCLOPHOSPHAMIDE. [Concomitant]
     Active Substance: CYCLOPHOSPHAMIDE
     Dosage: 980 MG, UNK
     Route: 042
     Dates: start: 20160102, end: 20160102
  9. CEFOBACTAM [Concomitant]
     Active Substance: CEFOPERAZONE SODIUM\SULBACTAM SODIUM
     Dosage: 2 G, UNK
     Route: 042
     Dates: start: 20151016, end: 20151017
  10. G-LASTA [Suspect]
     Active Substance: PEGFILGRASTIM
     Dosage: 6MG, Q3WK
     Route: 058
     Dates: start: 20151122
  11. DOCETAXEL. [Concomitant]
     Active Substance: DOCETAXEL
     Dosage: 147 MG, UNK
     Route: 042
     Dates: start: 20151031, end: 20151031
  12. DOCETAXEL. [Concomitant]
     Active Substance: DOCETAXEL
     Dosage: 147 MG, UNK
     Route: 042
     Dates: start: 20160102, end: 20160102
  13. CYCLOPHOSPHAMIDE. [Concomitant]
     Active Substance: CYCLOPHOSPHAMIDE
     Dosage: 980 MG, UNK
     Route: 042
     Dates: start: 20151010, end: 20151010
  14. CYCLOPHOSPHAMIDE. [Concomitant]
     Active Substance: CYCLOPHOSPHAMIDE
     Dosage: 980 MG, UNK
     Route: 042
     Dates: start: 20151121, end: 20151121
  15. CYCLOPHOSPHAMIDE. [Concomitant]
     Active Substance: CYCLOPHOSPHAMIDE
     Dosage: 980 MG, UNK
     Route: 042
     Dates: start: 20160123, end: 20160123
  16. TOBRAMYCIN. [Concomitant]
     Active Substance: TOBRAMYCIN
     Dosage: 200 MG, UNK
     Route: 042
     Dates: start: 20151106, end: 20151108
  17. G-LASTA [Suspect]
     Active Substance: PEGFILGRASTIM
     Dosage: 6 MG, Q3WK
     Route: 058
     Dates: start: 20151213
  18. FILGRASTIM [Concomitant]
     Active Substance: FILGRASTIM
     Dosage: 150 MCG, UNK
     Route: 058
     Dates: start: 20151218, end: 20151219
  19. DOCETAXEL. [Concomitant]
     Active Substance: DOCETAXEL
     Dosage: 147 MG, UNK
     Route: 042
     Dates: start: 20151212, end: 20151212
  20. DOXORUBICIN [Concomitant]
     Active Substance: DOXORUBICIN
     Dosage: 98 MG, UNK
     Route: 042
     Dates: start: 20151212, end: 20151212
  21. CYCLOPHOSPHAMIDE. [Concomitant]
     Active Substance: CYCLOPHOSPHAMIDE
     Dosage: 980 MG, UNK
     Route: 042
     Dates: start: 20151212, end: 20151212
  22. CEFOBACTAM [Concomitant]
     Active Substance: CEFOPERAZONE SODIUM\SULBACTAM SODIUM
     Dosage: 2 G, UNK
     Route: 042
     Dates: start: 20151106, end: 20151108
  23. CEFOBACTAM [Concomitant]
     Active Substance: CEFOPERAZONE SODIUM\SULBACTAM SODIUM
     Dosage: 2 G, UNK
     Route: 042
     Dates: start: 20151218, end: 20151219
  24. G-LASTA [Suspect]
     Active Substance: PEGFILGRASTIM
     Dosage: 6MG, Q3WK
     Route: 058
     Dates: start: 20150103
  25. DOXORUBICIN [Concomitant]
     Active Substance: DOXORUBICIN
     Dosage: 98 MG, UNK
     Route: 042
     Dates: start: 20151031, end: 20151031
  26. DOXORUBICIN [Concomitant]
     Active Substance: DOXORUBICIN
     Dosage: 98 MG, UNK
     Route: 042
     Dates: start: 20160102, end: 20160102
  27. CEFOBACTAM [Concomitant]
     Active Substance: CEFOPERAZONE SODIUM\SULBACTAM SODIUM
     Dosage: 2 G, UNK
     Route: 042
     Dates: start: 20151127, end: 20151128
  28. CEFOBACTAM [Concomitant]
     Active Substance: CEFOPERAZONE SODIUM\SULBACTAM SODIUM
     Dosage: 2 G, UNK
     Route: 042
     Dates: start: 20160108, end: 20160109
  29. TOBRAMYCIN. [Concomitant]
     Active Substance: TOBRAMYCIN
     Dosage: 200 MG, UNK
     Route: 042
     Dates: start: 20151016, end: 20151017
  30. CYCLOPHOSPHAMIDE. [Concomitant]
     Active Substance: CYCLOPHOSPHAMIDE
     Dosage: 980 MG, UNK
     Route: 042
     Dates: start: 20151031, end: 20151031
  31. G-LASTA [Suspect]
     Active Substance: PEGFILGRASTIM
     Dosage: 6MG, Q3WK
     Route: 058
     Dates: start: 20160124
  32. FILGRASTIM [Concomitant]
     Active Substance: FILGRASTIM
     Dosage: 150 MCG, UNK
     Route: 058
     Dates: start: 20151016, end: 20151017
  33. DOCETAXEL. [Concomitant]
     Active Substance: DOCETAXEL
     Dosage: 147 MG, UNK
     Route: 042
     Dates: start: 20160123, end: 20160123
  34. DOXORUBICIN [Concomitant]
     Active Substance: DOXORUBICIN
     Dosage: 98 MG, UNK
     Route: 042
     Dates: start: 20160123, end: 20160123
  35. TOBRAMYCIN. [Concomitant]
     Active Substance: TOBRAMYCIN
     Dosage: 200 MG, UNK
     Route: 042
     Dates: start: 20151218, end: 20151219
  36. TOBRAMYCIN. [Concomitant]
     Active Substance: TOBRAMYCIN
     Dosage: 200 MG, UNK
     Route: 042
     Dates: start: 20160108, end: 20160109
  37. G-LASTA [Suspect]
     Active Substance: PEGFILGRASTIM
     Dosage: 6 MG, Q3WK
     Route: 058
     Dates: start: 20151101
  38. DOCETAXEL. [Concomitant]
     Active Substance: DOCETAXEL
     Dosage: 147 MG, UNK
     Route: 042
     Dates: start: 20151010, end: 20151010
  39. DOXORUBICIN [Concomitant]
     Active Substance: DOXORUBICIN
     Dosage: 98 MG, UNK
     Route: 042
     Dates: start: 20151121, end: 20151121

REACTIONS (1)
  - Neutropenia [Recovered/Resolved]

NARRATIVE: CASE EVENT DATE: 20160129
